FAERS Safety Report 18971760 (Version 1)
Quarter: 2021Q1

REPORT INFORMATION
  Report Type: Spontaneous
  Country: US (occurrence: US)
  Receive Date: 20210305
  Receipt Date: 20210305
  Transmission Date: 20210420
  Serious: No
  Sender: FDA-Public Use
  Company Number: US-LEADINGPHARMA-US-2021LEASPO00070

PATIENT
  Age: 52 Year
  Sex: Male
  Weight: 63.5 kg

DRUGS (7)
  1. HYDROCHLOROTHIAZIDE TABLETS USP [Suspect]
     Active Substance: HYDROCHLOROTHIAZIDE
     Indication: BLOOD PRESSURE MEASUREMENT
     Route: 065
  2. CARVEDILOL. [Suspect]
     Active Substance: CARVEDILOL
     Dosage: 25 MG IN MORNING AND 25 MG IN NIGHT
     Route: 065
  3. XANAX [Interacting]
     Active Substance: ALPRAZOLAM
     Route: 065
  4. VALSARTAN. [Suspect]
     Active Substance: VALSARTAN
     Indication: SEIZURE
     Route: 065
  5. CLONIDINE. [Interacting]
     Active Substance: CLONIDINE
     Indication: BLOOD PRESSURE INCREASED
     Route: 065
  6. CARVEDILOL. [Suspect]
     Active Substance: CARVEDILOL
     Indication: BLOOD PRESSURE MEASUREMENT
     Dosage: 12.5 MG IN MORNING AND 12.5 MG IN NIGHT
     Route: 065
  7. XANAX [Interacting]
     Active Substance: ALPRAZOLAM
     Indication: BLOOD PRESSURE INCREASED
     Route: 065

REACTIONS (10)
  - Head discomfort [Unknown]
  - Asthenia [Unknown]
  - Anxiety [Unknown]
  - Impaired work ability [Unknown]
  - Drug ineffective [Unknown]
  - Condition aggravated [Unknown]
  - Blood pressure increased [Unknown]
  - Palpitations [Unknown]
  - Gait inability [Unknown]
  - Paraesthesia [Unknown]

NARRATIVE: CASE EVENT DATE: 202102
